FAERS Safety Report 5247706-2 (Version None)
Quarter: 2007Q1

REPORT INFORMATION
  Report Type: 
  Country: None (occurrence: None)
  Receive Date: 20070227
  Receipt Date: 20070220
  Transmission Date: 20070707
  Serious: Yes (Hospitalization)
  Sender: FDA-Public Use
  Company Number: US-ELI_LILLY_AND_COMPANY-US200702004404

PATIENT
  Age: 79 Year
  Sex: Female

DRUGS (12)
  1. HUMALOG [Suspect]
     Dosage: 5 U, EACH MORNING
     Dates: start: 20050101
  2. HUMALOG [Suspect]
     Dosage: 4 U, EACH EVENING
     Dates: start: 20050101
  3. HUMULIN N [Suspect]
     Indication: DIABETES MELLITUS NON-INSULIN-DEPENDENT
     Dosage: UNK, UNKNOWN
     Dates: start: 19870101, end: 19900101
  4. ATENOLOL [Concomitant]
     Indication: HYPERTENSION
     Dosage: 100 MG, DAILY (1/D)
     Dates: start: 19870101
  5. COUMADIN [Concomitant]
     Indication: ANTICOAGULANT THERAPY
     Dosage: 2.5 MG, OTHER
     Dates: start: 19870101
  6. COZAAR [Concomitant]
     Indication: HYPERTENSION
     Dosage: UNK UNK, 2/D
     Dates: start: 19870101
  7. ISMO [Concomitant]
     Indication: CARDIAC DISORDER
     Dosage: UNK, UNKNOWN
     Dates: start: 19870101
  8. ASPIRIN [Concomitant]
     Indication: ANTICOAGULANT THERAPY
     Dosage: 325 MG, DAILY (1/D)
     Dates: start: 19870101
  9. MULTI-VITAMIN [Concomitant]
     Indication: SUPPLEMENTATION THERAPY
     Dosage: UNK UNK, DAILY (1/D)
     Dates: start: 19870101
  10. IRON [Concomitant]
     Indication: SUPPLEMENTATION THERAPY
     Dosage: UNK UNK, DAILY (1/D)
     Dates: start: 19870101
  11. NITROGLYCERIN [Concomitant]
     Indication: CARDIAC DISORDER
     Dosage: UNK UNK, OTHER
     Dates: start: 19870101
  12. AMARYL [Concomitant]
     Indication: DIABETES MELLITUS
     Dosage: 2 MG, DAILY (1/D)

REACTIONS (16)
  - AORTIC OCCLUSION [None]
  - ARTERIAL OCCLUSIVE DISEASE [None]
  - BLOOD CHOLESTEROL INCREASED [None]
  - BLOOD GLUCOSE FLUCTUATION [None]
  - BRONCHITIS VIRAL [None]
  - DYSKINESIA [None]
  - FATIGUE [None]
  - FEMORAL ARTERY OCCLUSION [None]
  - GOITRE [None]
  - IMMUNE SYSTEM DISORDER [None]
  - INJECTION SITE PAIN [None]
  - PERIPHERAL ARTERIAL OCCLUSIVE DISEASE [None]
  - PNEUMONIA PRIMARY ATYPICAL [None]
  - TENDONITIS [None]
  - WEIGHT DECREASED [None]
  - WEIGHT INCREASED [None]
